FAERS Safety Report 6196501-9 (Version None)
Quarter: 2009Q2

REPORT INFORMATION
  Report Type: 
  Country: None (occurrence: None)
  Receive Date: 20090520
  Receipt Date: 20090519
  Transmission Date: 20091009
  Serious: Yes (Death)
  Sender: FDA-Public Use
  Company Number: DE-TEVA-195346ISR

PATIENT
  Age: 67 Year
  Sex: Female

DRUGS (12)
  1. CISPLATIN [Suspect]
     Indication: NON-HODGKIN'S LYMPHOMA
  2. DOXORUBICIN HCL [Suspect]
     Indication: NON-HODGKIN'S LYMPHOMA
  3. ETOPOSIDE [Suspect]
     Indication: NON-HODGKIN'S LYMPHOMA
  4. METHOTREXATE [Suspect]
     Indication: NON-HODGKIN'S LYMPHOMA
  5. VINCRISTINE [Suspect]
     Indication: NON-HODGKIN'S LYMPHOMA
  6. CARMUSTINE [Suspect]
     Indication: NON-HODGKIN'S LYMPHOMA
  7. CYCLOPHOSPHAMIDE [Suspect]
     Indication: NON-HODGKIN'S LYMPHOMA
  8. CYTARABINE [Suspect]
     Indication: NON-HODGKIN'S LYMPHOMA
  9. DEXAMETHASONE 4MG TAB [Suspect]
     Indication: NON-HODGKIN'S LYMPHOMA
  10. MELPHALAN [Suspect]
     Indication: NON-HODGKIN'S LYMPHOMA
  11. PREDNISOLONE [Suspect]
     Indication: NON-HODGKIN'S LYMPHOMA
  12. RITUXIMAB [Suspect]
     Indication: NON-HODGKIN'S LYMPHOMA

REACTIONS (1)
  - CLOSTRIDIAL INFECTION [None]
